FAERS Safety Report 15291564 (Version 1)
Quarter: 2018Q4

REPORT INFORMATION
  Report Type: Report from Study
  Country: US (occurrence: US)
  Receive Date: 20180817
  Receipt Date: 20180817
  Transmission Date: 20190204
  Serious: Yes (Death, Other)
  Sender: FDA-Public Use
  Company Number: US-TAIHO ONCOLOGY  INC-EU-2018-01248

PATIENT
  Age: 62 Year
  Sex: Female
  Weight: 83.08 kg

DRUGS (1)
  1. LONSURF [Suspect]
     Active Substance: TIPIRACIL HYDROCHLORIDE\TRIFLURIDINE
     Indication: COLON CANCER
     Dosage: CYCLE 1 COMPLETED
     Route: 048
     Dates: start: 20180702, end: 20180713

REACTIONS (2)
  - Hepatic encephalopathy [Unknown]
  - Death [Fatal]

NARRATIVE: CASE EVENT DATE: 201807
